FAERS Safety Report 11392100 (Version 1)
Quarter: 2015Q3

REPORT INFORMATION
  Report Type: Spontaneous
  Country: US (occurrence: None)
  Receive Date: 20150817
  Receipt Date: 20150817
  Transmission Date: 20151125
  Serious: Yes (Other)
  Sender: FDA-Public Use
  Company Number: 2013P1019597

PATIENT
  Age: 43 Year
  Sex: Female
  Weight: 113.4 kg

DRUGS (1)
  1. TROKENDI XR [Suspect]
     Active Substance: TOPIRAMATE
     Indication: ANXIETY
     Dosage: 100 MG; X1; PO
     Route: 048
     Dates: start: 20130919, end: 20130919

REACTIONS (12)
  - Bite [None]
  - Facial pain [None]
  - Formication [None]
  - Paraesthesia [None]
  - Off label use [None]
  - Memory impairment [None]
  - Pain [None]
  - Sleep disorder [None]
  - Dysarthria [None]
  - Disturbance in attention [None]
  - Hypoaesthesia [None]
  - Feeling abnormal [None]

NARRATIVE: CASE EVENT DATE: 20130919
